FAERS Safety Report 16643058 (Version 1)
Quarter: 2019Q3

REPORT INFORMATION
  Report Type: Spontaneous
  Country: US (occurrence: US)
  Receive Date: 20190729
  Receipt Date: 20190729
  Transmission Date: 20191004
  Serious: No
  Sender: FDA-Public Use
  Company Number: US-AMNEAL PHARMACEUTICALS-2018AMN00482

PATIENT
  Age: 45 Year
  Sex: Male
  Weight: 108.84 kg

DRUGS (12)
  1. BACLOFEN. [Concomitant]
     Active Substance: BACLOFEN
  2. TESTOSTERONE CYPIONATE. [Concomitant]
     Active Substance: TESTOSTERONE CYPIONATE
  3. RELISTOR [Concomitant]
     Active Substance: METHYLNALTREXONE BROMIDE
  4. BISACODY [Concomitant]
  5. FAMOTIDINE. [Concomitant]
     Active Substance: FAMOTIDINE
  6. OXYCODONE HYDROCHLORIDE. [Suspect]
     Active Substance: OXYCODONE HYDROCHLORIDE
     Indication: CENTRAL CORD SYNDROME
     Dosage: 1 TABLETS, EVERY 4 HOURS
     Route: 048
     Dates: start: 20180721
  7. GABAPENTIN. [Concomitant]
     Active Substance: GABAPENTIN
  8. ONDANSETRON [Concomitant]
     Active Substance: ONDANSETRON
  9. RISPERDAL [Concomitant]
     Active Substance: RISPERIDONE
  10. GRALISE [Concomitant]
     Active Substance: GABAPENTIN
  11. MORPHINE ER [Concomitant]
     Active Substance: MORPHINE
  12. MULTIVITAMIN [Concomitant]
     Active Substance: VITAMINS

REACTIONS (2)
  - Drug ineffective [Unknown]
  - Product physical issue [Unknown]

NARRATIVE: CASE EVENT DATE: 20180729
